FAERS Safety Report 6965663-5 (Version None)
Quarter: 2010Q3

REPORT INFORMATION
  Report Type: 
  Country: None (occurrence: None)
  Receive Date: 20100903
  Receipt Date: 20100824
  Transmission Date: 20110219
  Serious: Yes (Death, Hospitalization, Other)
  Sender: FDA-Public Use
  Company Number: RU-ROCHE-722983

PATIENT
  Sex: Female
  Weight: 80 kg

DRUGS (1)
  1. ACTEMRA [Suspect]
     Indication: STILL'S DISEASE ADULT ONSET
     Dosage: FREQUENCY : ONCE, FORM : INFUSION
     Route: 042
     Dates: start: 20100708, end: 20100708

REACTIONS (2)
  - DISEASE PROGRESSION [None]
  - PANNICULITIS [None]
